FAERS Safety Report 5007096-7 (Version None)
Quarter: 2006Q1

REPORT INFORMATION
  Report Type: 
  Country: None (occurrence: None)
  Receive Date: 20060330
  Receipt Date: 20060306
  Transmission Date: 20060701
  Serious: Yes (Death, Hospitalization)
  Sender: FDA-Public Use
  Company Number: 2005171378

PATIENT
  Age: 83 Year
  Sex: Female

DRUGS (3)
  1. ZMAX [Suspect]
     Indication: PNEUMONIA
     Dosage: 2 GRAM (2 GRAM, ONCE)
     Dates: start: 20051027, end: 20051027
  2. METRONIDAZOLE [Concomitant]
  3. LEVAQUIN [Concomitant]

REACTIONS (2)
  - CLOSTRIDIAL INFECTION [None]
  - DIARRHOEA [None]
